FAERS Safety Report 25380059 (Version 1)
Quarter: 2025Q2

REPORT INFORMATION
  Report Type: Spontaneous
  Country: US (occurrence: US)
  Receive Date: 20250530
  Receipt Date: 20250530
  Transmission Date: 20250717
  Serious: No
  Sender: CIPLA
  Company Number: US-CIPLA LTD.-2024US09525

PATIENT

DRUGS (3)
  1. ALBUTEROL [Suspect]
     Active Substance: ALBUTEROL
     Indication: Wheezing
     Dosage: INHALER-1, 2 PUFFS (180 MCG) AS EVERY 6 HOURS
     Route: 065
     Dates: start: 2024
  2. ALBUTEROL [Suspect]
     Active Substance: ALBUTEROL
     Dosage: INHALER-2, 2 PUFFS (180 MCG) AS EVERY 6 HOURS
     Route: 065
     Dates: start: 202407
  3. ALBUTEROL SULFATE [Concomitant]
     Active Substance: ALBUTEROL SULFATE
     Indication: Product used for unknown indication
     Route: 065

REACTIONS (6)
  - Dyspnoea [Not Recovered/Not Resolved]
  - Drug ineffective [Unknown]
  - Wrong technique in product usage process [Unknown]
  - Product substitution issue [Unknown]
  - Product packaging quantity issue [Unknown]
  - Device delivery system issue [Unknown]

NARRATIVE: CASE EVENT DATE: 20240101
